FAERS Safety Report 6155975-X (Version None)
Quarter: 2009Q2

REPORT INFORMATION
  Report Type: 
  Country: None (occurrence: None)
  Receive Date: 20090415
  Receipt Date: 20090403
  Transmission Date: 20091009
  Serious: Yes (Other)
  Sender: FDA-Public Use
  Company Number: US-ROCHE-625782

PATIENT
  Age: 68 Year
  Sex: Female

DRUGS (3)
  1. BONIVA [Suspect]
     Dosage: MISSED DOSE
     Route: 065
     Dates: start: 20060401
  2. PREDNISONE [Concomitant]
     Dosage: LOW DOSE
  3. PREMARIN [Concomitant]

REACTIONS (4)
  - CROHN'S DISEASE [None]
  - INFLUENZA LIKE ILLNESS [None]
  - PAIN [None]
  - RESPIRATORY TRACT INFECTION [None]
